FAERS Safety Report 23306458 (Version 1)
Quarter: 2023Q4

REPORT INFORMATION
  Report Type: Spontaneous
  Country: US (occurrence: US)
  Receive Date: 20231218
  Receipt Date: 20231218
  Transmission Date: 20240110
  Serious: No
  Sender: FDA-Public Use
  Company Number: US-BMS-IMIDS-REMS_SI-10962951

PATIENT
  Sex: Male

DRUGS (1)
  1. LENALIDOMIDE [Suspect]
     Active Substance: LENALIDOMIDE
     Indication: Product used for unknown indication
     Dosage: WAS DISPENSED LENALIDOMIDE 10MG QUANTITY 21 CAPSULES ON 18-SEP-2023 AND 12-OCT-2023.

REACTIONS (1)
  - Rash [Unknown]
